FAERS Safety Report 6674600-2 (Version None)
Quarter: 2010Q2

REPORT INFORMATION
  Report Type: 
  Country: None (occurrence: None)
  Receive Date: 20100409
  Receipt Date: 20100406
  Transmission Date: 20101027
  Serious: Yes (Death)
  Sender: FDA-Public Use
  Company Number: DE-CEPHALON-2010001954

PATIENT
  Sex: Female

DRUGS (2)
  1. EFFENTORA [Suspect]
     Indication: BREAKTHROUGH PAIN
     Route: 002
     Dates: start: 20090703
  2. FENTANYL CITRATE [Concomitant]
     Indication: BREAKTHROUGH PAIN

REACTIONS (2)
  - DEATH [None]
  - DRUG PRESCRIBING ERROR [None]
